FAERS Safety Report 7053884-5 (Version None)
Quarter: 2010Q4

REPORT INFORMATION
  Report Type: 
  Country: None (occurrence: None)
  Receive Date: 20101020
  Receipt Date: 20101008
  Transmission Date: 20110411
  Serious: Yes (Hospitalization, Other)
  Sender: FDA-Public Use
  Company Number: JP-BRISTOL-MYERS SQUIBB COMPANY-15328719

PATIENT
  Age: 5 Decade
  Sex: Male

DRUGS (3)
  1. BARACLUDE [Suspect]
     Indication: HEPATITIS B
     Route: 048
     Dates: start: 20070601
  2. BASEN [Concomitant]
     Route: 048
     Dates: start: 20100601, end: 20100801
  3. ADEFOVIR DIPIVOXIL KIT [Concomitant]
     Route: 048

REACTIONS (2)
  - HEPATITIS [None]
  - HEPATITIS B DNA INCREASED [None]
